FAERS Safety Report 12095530 (Version 1)
Quarter: 2016Q1

REPORT INFORMATION
  Report Type: Spontaneous
  Country: US (occurrence: US)
  Receive Date: 20160219
  Receipt Date: 20160219
  Transmission Date: 20160526
  Serious: Yes (Life-Threatening, Hospitalization, Other)
  Sender: FDA-Public Use
  Company Number: US-LUNDBECK-DKLU2010017

PATIENT
  Age: 35 Year
  Sex: Female

DRUGS (8)
  1. ONFI [Suspect]
     Active Substance: CLOBAZAM
     Route: 048
     Dates: start: 201404
  2. KEPPRA [Suspect]
     Active Substance: LEVETIRACETAM
     Dosage: NOON
     Route: 065
  3. KEPPRA [Suspect]
     Active Substance: LEVETIRACETAM
     Indication: EPILEPSY
     Route: 065
  4. PROGESTERONE. [Suspect]
     Active Substance: PROGESTERONE
     Indication: SEIZURE
     Route: 030
  5. ARMOUR THYROID [Concomitant]
     Active Substance: THYROID, PORCINE
     Indication: THYROID DISORDER
     Route: 065
  6. PHENOBARBITAL. [Suspect]
     Active Substance: PHENOBARBITAL
     Indication: EPILEPSY
     Route: 065
  7. ONFI [Suspect]
     Active Substance: CLOBAZAM
     Route: 048
     Dates: start: 201505
  8. ONFI [Suspect]
     Active Substance: CLOBAZAM
     Indication: EPILEPSY
     Route: 048
     Dates: start: 201311

REACTIONS (5)
  - Feeling abnormal [Recovering/Resolving]
  - Seizure [Recovering/Resolving]
  - Weight increased [Not Recovered/Not Resolved]
  - Drug withdrawal convulsions [Recovered/Resolved]
  - Irritability [Recovering/Resolving]

NARRATIVE: CASE EVENT DATE: 201311
